FAERS Safety Report 16828926 (Version 1)
Quarter: 2019Q3

REPORT INFORMATION
  Report Type: Spontaneous
  Country: JP (occurrence: JP)
  Receive Date: 20190919
  Receipt Date: 20190919
  Transmission Date: 20191005
  Serious: Yes (Other)
  Sender: FDA-Public Use
  Company Number: JP-JNJFOC-20190920187

PATIENT

DRUGS (1)
  1. RIVAROXABAN [Suspect]
     Active Substance: RIVAROXABAN
     Indication: ATRIAL FIBRILLATION
     Dosage: 7.5 MG, QD
     Route: 048

REACTIONS (3)
  - Product prescribing issue [Unknown]
  - Wrong technique in product usage process [Unknown]
  - Cerebral infarction [Unknown]
